FAERS Safety Report 17228031 (Version 3)
Quarter: 2023Q2

REPORT INFORMATION
  Report Type: Spontaneous
  Country: HU (occurrence: HU)
  Receive Date: 20200103
  Receipt Date: 20230505
  Transmission Date: 20230721
  Serious: Yes (Life-Threatening, Hospitalization)
  Sender: FDA-Public Use
  Company Number: HU-EMA-DD-20191223-KUMARVN_P-140744

PATIENT
  Age: 66 Year
  Sex: Female

DRUGS (19)
  1. MOXIFLOXACIN [Suspect]
     Active Substance: MOXIFLOXACIN
     Indication: Product used for unknown indication
     Dosage: 400 MG, QD
     Route: 042
     Dates: start: 20181123, end: 20181127
  2. ASPIRIN [Suspect]
     Active Substance: ASPIRIN
     Indication: Product used for unknown indication
     Dosage: UNK
     Route: 065
  3. CLARITHROMYCIN [Suspect]
     Active Substance: CLARITHROMYCIN
     Indication: Product used for unknown indication
     Dosage: 1000 MILLIGRAM, TOT
     Route: 048
     Dates: start: 20181120, end: 20181123
  4. FOLIC ACID\IRON POLYMALTOSE [Suspect]
     Active Substance: FOLIC ACID\IRON POLYMALTOSE
     Indication: Iron deficiency anaemia
     Dosage: 2 DOSAGE FORM
     Route: 048
     Dates: start: 201812, end: 20190116
  5. METRONIDAZOLE [Suspect]
     Active Substance: METRONIDAZOLE
     Indication: Product used for unknown indication
     Dosage: 1000 MG, QD (2X 500 MG, DAILY)
     Route: 042
  6. TEICOPLANIN [Suspect]
     Active Substance: TEICOPLANIN
     Indication: Product used for unknown indication
     Dosage: 800 MG (2X400 MG)
     Route: 042
     Dates: start: 201812, end: 20181228
  7. VANCOMYCIN [Suspect]
     Active Substance: VANCOMYCIN
     Indication: Product used for unknown indication
     Dosage: 500 MG, DAILY
     Route: 042
     Dates: start: 20181203, end: 20181213
  8. CEFTRIAXONE [Suspect]
     Active Substance: CEFTRIAXONE
     Indication: Product used for unknown indication
     Dosage: 2 G, QD
     Route: 042
     Dates: start: 20181203, end: 20181226
  9. MEROPENEM [Suspect]
     Active Substance: MEROPENEM
     Indication: Product used for unknown indication
     Dosage: 1000 MG (2X500 MG)
     Route: 065
     Dates: start: 201812, end: 20181228
  10. FOLIC ACID [Suspect]
     Active Substance: FOLIC ACID
     Indication: Product used for unknown indication
     Dosage: UNK
     Route: 065
  11. METHYLPREDNISOLONE SODIUM SUCCINATE [Suspect]
     Active Substance: METHYLPREDNISOLONE SODIUM SUCCINATE
     Indication: Rash
     Dosage: 125 MG
     Route: 051
     Dates: start: 20181207
  12. PENTAGLOBIN [Suspect]
     Active Substance: HUMAN IMMUNOGLOBULIN G
     Indication: Product used for unknown indication
     Dosage: 500 MG/KG
     Route: 042
     Dates: start: 20181204, end: 20181207
  13. ASPIRIN [Suspect]
     Active Substance: ASPIRIN
     Indication: Product used for unknown indication
     Dosage: 100 MILLIGRAM, QD, 4 TIMES TOTAL
     Route: 048
     Dates: start: 20181109, end: 20181119
  14. METHYLPREDNISOLONE [Suspect]
     Active Substance: METHYLPREDNISOLONE
     Indication: Rash
     Dosage: UNK
     Route: 065
     Dates: end: 20190121
  15. METHYLPREDNISOLONE [Suspect]
     Active Substance: METHYLPREDNISOLONE
     Dosage: 80 MG, UNK (80 MG, FOR 2 DAYS )
     Route: 051
     Dates: start: 20181120
  16. METHYLPREDNISOLONE [Suspect]
     Active Substance: METHYLPREDNISOLONE
     Dosage: 20 MG, QD(FOR 3 DAYS)
     Route: 048
     Dates: start: 20181114
  17. METHYLPREDNISOLONE [Suspect]
     Active Substance: METHYLPREDNISOLONE
     Dosage: 60 MG, QD (FOR 3 DAYS)
     Route: 065
  18. HUMAN IMMUNOGLOBULIN G [Suspect]
     Active Substance: HUMAN IMMUNOGLOBULIN G
     Indication: Product used for unknown indication
     Dosage: UNK
     Route: 065
  19. IRON [Suspect]
     Active Substance: IRON
     Indication: Product used for unknown indication
     Dosage: UNK
     Route: 065

REACTIONS (7)
  - Skin ulcer [Recovered/Resolved]
  - Enterococcal infection [Recovered/Resolved]
  - Stenotrophomonas infection [Recovered/Resolved]
  - Acinetobacter infection [Recovered/Resolved]
  - Disease progression [Unknown]
  - Enterococcal infection [Recovered/Resolved]
  - Wound infection bacterial [Recovered/Resolved]

NARRATIVE: CASE EVENT DATE: 20181207
